FAERS Safety Report 5500664-5 (Version None)
Quarter: 2007Q4

REPORT INFORMATION
  Report Type: 
  Country: None (occurrence: None)
  Receive Date: 20071022
  Receipt Date: 20070802
  Transmission Date: 20080405
  Serious: No
  Sender: FDA-Public Use
  Company Number: SPV1-2007-03742

PATIENT

DRUGS (1)
  1. VYVANSE [Suspect]
     Dates: start: 20070101

REACTIONS (2)
  - OFF LABEL USE [None]
  - SOMNOLENCE [None]
